FAERS Safety Report 17316310 (Version 2)
Quarter: 2020Q1

REPORT INFORMATION
  Report Type: Spontaneous
  Country: US (occurrence: US)
  Receive Date: 20200124
  Receipt Date: 20200310
  Transmission Date: 20200409
  Serious: Yes (Other)
  Sender: FDA-Public Use
  Company Number: US-009507513-2001USA008061

PATIENT
  Age: 26 Year
  Sex: Female
  Weight: 58.5 kg

DRUGS (3)
  1. NEXPLANON [Suspect]
     Active Substance: ETONOGESTREL
     Dosage: 1 ROD EVERY 3 YEARS
     Route: 059
     Dates: end: 20200116
  2. NEXPLANON [Suspect]
     Active Substance: ETONOGESTREL
     Indication: CONTRACEPTION
     Dosage: 1 ROD EVERY 3 YEARS
     Route: 059
     Dates: start: 20140401
  3. NEXPLANON [Suspect]
     Active Substance: ETONOGESTREL
     Dosage: LEFT ARM, 1 ROD EVERY 3 YEARS
     Route: 058
     Dates: start: 20200116, end: 20200120

REACTIONS (5)
  - Device dislocation [Recovered/Resolved]
  - Neuralgia [Recovering/Resolving]
  - Hypoaesthesia [Recovering/Resolving]
  - Motor dysfunction [Recovering/Resolving]
  - Discomfort [Unknown]

NARRATIVE: CASE EVENT DATE: 20200116
